FAERS Safety Report 21589254 (Version 1)
Quarter: 2022Q4

REPORT INFORMATION
  Report Type: Other
  Country: CN (occurrence: None)
  Receive Date: 20221114
  Receipt Date: 20221114
  Transmission Date: 20230113
  Serious: Yes (Other)
  Sender: FDA-Public Use
  Company Number: CN-ROCHE-3216482

PATIENT
  Age: 55 Year
  Sex: Male

DRUGS (17)
  1. CAPECITABINE [Suspect]
     Active Substance: CAPECITABINE
     Indication: Colon cancer metastatic
     Dosage: FOR DAY 1-14
     Route: 048
     Dates: start: 20180209, end: 20180709
  2. CAPECITABINE [Suspect]
     Active Substance: CAPECITABINE
     Dosage: MONOTHERAPY FOR 3 CYCLES
     Route: 048
     Dates: start: 20181031
  3. CAPECITABINE [Suspect]
     Active Substance: CAPECITABINE
     Route: 048
     Dates: start: 201812
  4. BEVACIZUMAB [Suspect]
     Active Substance: BEVACIZUMAB
     Indication: Colon cancer metastatic
     Route: 041
     Dates: start: 201812, end: 202007
  5. BEVACIZUMAB [Suspect]
     Active Substance: BEVACIZUMAB
     Route: 041
     Dates: start: 20200715
  6. BEVACIZUMAB [Suspect]
     Active Substance: BEVACIZUMAB
     Route: 041
     Dates: start: 20200809
  7. IRINOTECAN [Suspect]
     Active Substance: IRINOTECAN
     Indication: Colon cancer metastatic
     Route: 065
     Dates: start: 201812, end: 202007
  8. OXALIPLATIN [Suspect]
     Active Substance: OXALIPLATIN
     Indication: Colon cancer metastatic
     Dosage: DAY 1
     Route: 041
     Dates: start: 20180209, end: 20180709
  9. OXALIPLATIN [Suspect]
     Active Substance: OXALIPLATIN
     Route: 041
     Dates: start: 20181031, end: 20181031
  10. OXALIPLATIN [Suspect]
     Active Substance: OXALIPLATIN
     Route: 041
     Dates: start: 20200716
  11. OXALIPLATIN [Suspect]
     Active Substance: OXALIPLATIN
     Dosage: AT 12:37,
     Route: 041
     Dates: start: 20200802
  12. OXYGEN [Concomitant]
     Active Substance: OXYGEN
  13. DIPHENHYDRAMINE [Concomitant]
     Active Substance: DIPHENHYDRAMINE
     Route: 030
  14. METHYLPREDNISOLONE [Concomitant]
     Active Substance: METHYLPREDNISOLONE
     Route: 042
  15. RALTITREXED [Concomitant]
     Active Substance: RALTITREXED
     Route: 041
  16. EPINEPHRINE [Concomitant]
     Active Substance: EPINEPHRINE
     Route: 042
  17. NIKETHAMIDE [Concomitant]
     Active Substance: NIKETHAMIDE
     Route: 042

REACTIONS (3)
  - Metastases to lung [Unknown]
  - Metastases to lymph nodes [Unknown]
  - Disease progression [Unknown]
